FAERS Safety Report 25691180 (Version 1)
Quarter: 2025Q3

REPORT INFORMATION
  Report Type: Spontaneous
  Country: US (occurrence: US)
  Receive Date: 20250818
  Receipt Date: 20250818
  Transmission Date: 20251020
  Serious: Yes (Other)
  Sender: UNITED THERAPEUTICS
  Company Number: US-UNITED THERAPEUTICS-UNT-2025-028268

PATIENT
  Age: 54 Year
  Sex: Female

DRUGS (10)
  1. REMODULIN [Suspect]
     Active Substance: TREPROSTINIL
     Indication: Pulmonary arterial hypertension
     Route: 041
  2. REMODULIN [Suspect]
     Active Substance: TREPROSTINIL
     Indication: Systemic lupus erythematosus
  3. SOTATERCEPT [Suspect]
     Active Substance: SOTATERCEPT
     Indication: Pulmonary arterial hypertension
  4. SOTATERCEPT [Suspect]
     Active Substance: SOTATERCEPT
     Indication: Systemic lupus erythematosus
  5. SOTATERCEPT [Suspect]
     Active Substance: SOTATERCEPT
  6. SOTATERCEPT [Suspect]
     Active Substance: SOTATERCEPT
  7. MACITENTAN [Concomitant]
     Active Substance: MACITENTAN
     Indication: Pulmonary arterial hypertension
  8. MACITENTAN [Concomitant]
     Active Substance: MACITENTAN
     Indication: Systemic lupus erythematosus
  9. TADALAFIL [Concomitant]
     Active Substance: TADALAFIL
     Indication: Pulmonary arterial hypertension
  10. TADALAFIL [Concomitant]
     Active Substance: TADALAFIL
     Indication: Systemic lupus erythematosus

REACTIONS (3)
  - Pericardial effusion [Not Recovered/Not Resolved]
  - Systolic dysfunction [Unknown]
  - Hyperplasia [Unknown]
